FAERS Safety Report 22002186 (Version 1)
Quarter: 2023Q1

REPORT INFORMATION
  Report Type: Spontaneous
  Country: US (occurrence: US)
  Receive Date: 20230217
  Receipt Date: 20230217
  Transmission Date: 20230418
  Serious: Yes (Other)
  Sender: FDA-Public Use
  Company Number: US-drreddys-LIT/USA/23/0161048

PATIENT
  Age: 28 Year
  Sex: Female

DRUGS (4)
  1. COLCHICINE [Suspect]
     Active Substance: COLCHICINE
     Indication: Urticarial vasculitis
  2. PREDNISONE [Suspect]
     Active Substance: PREDNISONE
     Indication: Urticarial vasculitis
  3. HYDROXYCHLOROQUINE [Suspect]
     Active Substance: HYDROXYCHLOROQUINE
     Indication: Urticarial vasculitis
  4. DAPSONE [Suspect]
     Active Substance: DAPSONE
     Indication: Urticarial vasculitis

REACTIONS (1)
  - Drug ineffective for unapproved indication [Unknown]
